FAERS Safety Report 8423289-0 (Version None)
Quarter: 2012Q2

REPORT INFORMATION
  Report Type: 
  Country: None (occurrence: None)
  Receive Date: 20120608
  Receipt Date: 20120606
  Transmission Date: 20120825
  Serious: Yes (Other)
  Sender: FDA-Public Use
  Company Number: PHHY2012ES044428

PATIENT
  Age: 60 Year
  Sex: Female

DRUGS (3)
  1. CHEMOTHERAPEUTICS [Concomitant]
     Dates: end: 20100301
  2. LETROZOLE [Concomitant]
  3. ZOMETA [Suspect]
     Dates: start: 20100401

REACTIONS (2)
  - RADIUS FRACTURE [None]
  - FALL [None]
